FAERS Safety Report 10360270 (Version 1)
Quarter: 2014Q3

REPORT INFORMATION
  Report Type: Spontaneous
  Country: US (occurrence: None)
  Receive Date: 20140801
  Receipt Date: 20140801
  Transmission Date: 20150326
  Serious: Yes (Other)
  Sender: FDA-Public Use
  Company Number: None

PATIENT
  Age: 63 Year
  Sex: Female
  Weight: 74 kg

DRUGS (11)
  1. OXYCODONE/ACETAMINOPHEN [Concomitant]
     Active Substance: ACETAMINOPHEN\OXYCODONE\OXYCODONE HYDROCHLORIDE
  2. OXYCODONE [Suspect]
     Active Substance: OXYCODONE
     Indication: PAIN
     Route: 048
     Dates: start: 20140124, end: 20140125
  3. PANTOPRAZOLE [Concomitant]
     Active Substance: PANTOPRAZOLE SODIUM
  4. DIAZEPAM. [Concomitant]
     Active Substance: DIAZEPAM
  5. ROPINIROLE. [Concomitant]
     Active Substance: ROPINIROLE
  6. SIMVASTATIN. [Concomitant]
     Active Substance: SIMVASTATIN
  7. WARFARIN [Concomitant]
     Active Substance: WARFARIN
  8. OXYCODONE [Concomitant]
     Active Substance: OXYCODONE
  9. ZOLPIDEM [Concomitant]
     Active Substance: ZOLPIDEM\ZOLPIDEM TARTRATE
  10. ENOXAPARIN [Concomitant]
     Active Substance: ENOXAPARIN
  11. PREGABALIN. [Concomitant]
     Active Substance: PREGABALIN

REACTIONS (2)
  - Mental status changes [None]
  - Unresponsive to stimuli [None]

NARRATIVE: CASE EVENT DATE: 20140125
